FAERS Safety Report 20624746 (Version 1)
Quarter: 2022Q1

REPORT INFORMATION
  Report Type: Spontaneous
  Country: US (occurrence: None)
  Receive Date: 20220323
  Receipt Date: 20220323
  Transmission Date: 20220423
  Serious: No
  Sender: FDA-Public Use
  Company Number: 2022A103658

PATIENT
  Age: 74 Year
  Sex: Female
  Weight: 83 kg

DRUGS (1)
  1. BUDESONIDE\FORMOTEROL\GLYCOPYRRONIUM [Suspect]
     Active Substance: BUDESONIDE\FORMOTEROL\GLYCOPYRRONIUM
     Indication: Hypersensitivity
     Dosage: 160/9/4.8 MCG TWO INHALATIONS TWO TIMES A DAY
     Route: 055
     Dates: start: 202201

REACTIONS (4)
  - Dyspnoea [Unknown]
  - Off label use [Unknown]
  - Wrong technique in product usage process [Unknown]
  - Device use confusion [Unknown]

NARRATIVE: CASE EVENT DATE: 20220101
